FAERS Safety Report 21121695 (Version 1)
Quarter: 2022Q3

REPORT INFORMATION
  Report Type: Spontaneous
  Country: VN (occurrence: VN)
  Receive Date: 20220722
  Receipt Date: 20220722
  Transmission Date: 20221027
  Serious: Yes (Other)
  Sender: FDA-Public Use
  Company Number: VN-ASTELLAS-2022US026010

PATIENT
  Sex: Male

DRUGS (2)
  1. ERLOTINIB [Suspect]
     Active Substance: ERLOTINIB
     Indication: Non-small cell lung cancer recurrent
     Route: 048
     Dates: start: 20210705
  2. ERLOTINIB [Suspect]
     Active Substance: ERLOTINIB
     Route: 048
     Dates: start: 20210908

REACTIONS (4)
  - Non-small cell lung cancer recurrent [Unknown]
  - Paronychia [Recovered/Resolved]
  - Rash [Recovered/Resolved]
  - Lymphadenitis [Unknown]
